FAERS Safety Report 19884847 (Version 1)
Quarter: 2021Q3

REPORT INFORMATION
  Report Type: Spontaneous
  Country: US (occurrence: US)
  Receive Date: 20210927
  Receipt Date: 20210927
  Transmission Date: 20211014
  Serious: Yes (Hospitalization)
  Sender: FDA-Public Use
  Company Number: None

PATIENT
  Age: 82 Year
  Sex: Female
  Weight: 63.5 kg

DRUGS (2)
  1. IMDEVIMAB. [Suspect]
     Active Substance: IMDEVIMAB
     Indication: COVID-19
     Dosage: ?          OTHER FREQUENCY:ONCE;?
     Route: 041
     Dates: start: 20210923, end: 20210923
  2. CASIRIVIMAB. [Suspect]
     Active Substance: CASIRIVIMAB
     Indication: COVID-19
     Dosage: ?          OTHER FREQUENCY:ONCE;?
     Route: 041
     Dates: start: 20210923, end: 20210923

REACTIONS (6)
  - Abdominal pain [None]
  - Muscle spasms [None]
  - Nausea [None]
  - Diarrhoea [None]
  - Dyspnoea exertional [None]
  - Condition aggravated [None]

NARRATIVE: CASE EVENT DATE: 20210927
